FAERS Safety Report 7229229-4 (Version None)
Quarter: 2011Q1

REPORT INFORMATION
  Report Type: 
  Country: None (occurrence: None)
  Receive Date: 20110117
  Receipt Date: 20110104
  Transmission Date: 20110831
  Serious: Yes (Other)
  Sender: FDA-Public Use
  Company Number: DE-ELI_LILLY_AND_COMPANY-DE201101000854

PATIENT
  Age: 48 Year
  Sex: Female
  Weight: 120 kg

DRUGS (9)
  1. CYMBALTA [Suspect]
     Indication: DEPRESSION
     Dosage: 60 D/F, 2/D
     Route: 048
     Dates: start: 20090101
  2. TARGIN [Concomitant]
     Indication: PAIN
     Dosage: 2 D/F, EACH MORNING
     Route: 048
     Dates: start: 20090101
  3. TARGIN [Concomitant]
     Dosage: 2 D/F, EACH EVENING
     Route: 048
     Dates: start: 20090101
  4. KATADOLON [Concomitant]
     Indication: PAIN
     Dosage: UNK, 2/D
     Route: 048
     Dates: start: 20090101
  5. TARGIN [Concomitant]
     Dosage: 1 D/F, DAILY (1/D)
     Route: 048
     Dates: start: 20090101
  6. ARCOXIA [Concomitant]
     Indication: PAIN
     Dosage: 60 D/F, DAILY (1/D)
     Route: 048
     Dates: start: 20090101
  7. MIRTAZAPIN [Concomitant]
     Dosage: 30 D/F, DAILY (1/D)
  8. LYRICA [Concomitant]
     Indication: PAIN
     Dosage: 150 D/F, 2/D
     Route: 048
     Dates: start: 20090101
  9. DOMINAL FORTE [Concomitant]
     Dosage: 40 MG, AS NEEDED

REACTIONS (2)
  - DRUG EFFECT DECREASED [None]
  - DRUG DEPENDENCE [None]
